FAERS Safety Report 4365122-2 (Version None)
Quarter: 2004Q2

REPORT INFORMATION
  Report Type: 
  Country: None (occurrence: None)
  Receive Date: 20040521
  Receipt Date: 20040511
  Transmission Date: 20050107
  Serious: Yes (Hospitalization)
  Sender: FDA-Public Use
  Company Number: STA-AE-04-MTX-191

PATIENT
  Age: 37 Year
  Sex: Female

DRUGS (5)
  1. RHEUMATREX [Suspect]
     Indication: RHEUMATOID ARTHRITIS
     Dosage: WEEKLY ORAL CPSULES
     Dates: start: 20010604, end: 20040429
  2. PLACEBO FOR ETANERCEPT (INJECTION) [Suspect]
     Indication: RHEUMATOID ARTHRITIS
     Dosage: 25 MG TWICE WEEKLY, SC
     Route: 058
     Dates: start: 20010604, end: 20040429
  3. DESOGESTREL (DESOGESTREL) [Concomitant]
  4. ETHINYL ESTRADIOL TAB [Concomitant]
  5. CHLORHEXIDINE (CHLORHEXIDINE) [Concomitant]

REACTIONS (3)
  - INFECTION [None]
  - LUNG INFILTRATION [None]
  - PRODUCTIVE COUGH [None]
